FAERS Safety Report 9931480 (Version 2)
Quarter: 2014Q1

REPORT INFORMATION
  Report Type: Report from Study
  Country: FR (occurrence: FR)
  Receive Date: 20140228
  Receipt Date: 20140324
  Transmission Date: 20141002
  Serious: Yes (Hospitalization)
  Sender: FDA-Public Use
  Company Number: FR-ROCHE-1354031

PATIENT
  Sex: Male

DRUGS (13)
  1. BEVACIZUMAB [Suspect]
     Indication: COLON CANCER METASTATIC
     Dosage: LAST DOSE OF BEVACIZUMAB PRIOR TO SAE RECEIVED ON 11/SEP/2013 AT A DOSE OF 325 MG
     Route: 065
  2. FOLINIC ACID [Suspect]
     Indication: COLON CANCER METASTATIC
     Dosage: LAST DOSE PRIOR TO SAE 650 MG ON 14/AUG/2013
     Route: 065
  3. IRINOTECAN [Suspect]
     Indication: COLON CANCER METASTATIC
     Dosage: LAST DOSE PRIOR TO SAE 240 MG ON 14/AUG/2013
     Route: 065
  4. FLUOROURACIL [Suspect]
     Indication: COLON CANCER METASTATIC
     Dosage: LAST DOSE PRIOR TO SAE 700 MG IN BOLUS AND 4000 MG AS CONTINUOUS DOSING ON 14/AUG/2013
     Route: 065
  5. AERIUS [Concomitant]
     Indication: ASTHMA
     Route: 065
  6. BECOTIDE [Concomitant]
     Indication: ASTHMA
  7. ALPRAZOLAM [Concomitant]
     Indication: ANXIETY
     Route: 065
  8. CREON [Concomitant]
     Indication: PANCREATIC INSUFFICIENCY
     Route: 065
  9. STILNOX [Concomitant]
     Indication: SLEEP DISORDER
     Route: 065
  10. LYRICA [Concomitant]
     Indication: NEURALGIA
     Route: 065
  11. MAXAIR [Concomitant]
     Indication: ASTHMA
     Route: 065
  12. PREVISCAN (FRANCE) [Concomitant]
     Indication: ATRIAL FIBRILLATION
     Route: 065
  13. LASILIX [Concomitant]

REACTIONS (3)
  - Bradycardia [Recovered/Resolved]
  - Generalised oedema [Recovered/Resolved]
  - Cardiac failure [Recovered/Resolved]
